FAERS Safety Report 9630351 (Version 1)
Quarter: 2013Q4

REPORT INFORMATION
  Report Type: Spontaneous
  Country: US (occurrence: US)
  Receive Date: 20131018
  Receipt Date: 20131018
  Transmission Date: 20140711
  Serious: Yes (Other)
  Sender: FDA-Public Use
  Company Number: US-AMGEN-USASP2013072154

PATIENT
  Age: 72 Year
  Sex: Female

DRUGS (5)
  1. NPLATE [Suspect]
     Indication: IMMUNE THROMBOCYTOPENIC PURPURA
     Dosage: UNK UNK, QWK
     Route: 065
  2. METFORMIN [Concomitant]
     Indication: DIABETES MELLITUS
     Dosage: 500 MG, QD
  3. ENALAPRIL [Concomitant]
     Indication: BLOOD PRESSURE
     Dosage: 20 MG, QD
  4. ADVAIR [Concomitant]
  5. ALLERGY MEDICATION [Concomitant]

REACTIONS (9)
  - Haemorrhage [Unknown]
  - Hypoaesthesia [Unknown]
  - Muscular weakness [Unknown]
  - Arthritis [Unknown]
  - Balance disorder [Unknown]
  - Fatigue [Unknown]
  - Sensation of heaviness [Unknown]
  - Blood iron decreased [Unknown]
  - Paraesthesia [Unknown]
